FAERS Safety Report 8836491 (Version 2)
Quarter: 2013Q2

REPORT INFORMATION
  Report Type: Spontaneous
  Country: CA (occurrence: CA)
  Receive Date: 20121011
  Receipt Date: 20130610
  Transmission Date: 20140414
  Serious: Yes (Hospitalization, Other)
  Sender: FDA-Public Use
  Company Number: CA-ELI_LILLY_AND_COMPANY-CA201210001549

PATIENT
  Age: 44 Year
  Sex: Male

DRUGS (5)
  1. CIALIS [Suspect]
     Indication: ERECTILE DYSFUNCTION
     Dosage: 5 MG, QD
     Route: 048
     Dates: end: 201102
  2. ASPIRIN [Concomitant]
     Dosage: 81 MG, QD
     Route: 048
  3. METFORMIN [Concomitant]
     Dosage: 500 MG, TID
  4. MOTRIN [Concomitant]
     Dosage: 1 DF, UNKNOWN
  5. TUMS                               /00193601/ [Concomitant]
     Dosage: 1 DF, UNKNOWN

REACTIONS (3)
  - Intestinal ischaemia [Recovered/Resolved]
  - Sepsis [Recovered/Resolved]
  - Septic shock [Recovered/Resolved]
